FAERS Safety Report 6648205 (Version 2)
Quarter: 2017Q1

REPORT INFORMATION
  Report Type: Spontaneous
  Country: BE (occurrence: BE)
  Receive Date: 20080523
  Receipt Date: 20170117
  Transmission Date: 20170429
  Serious: Yes (Hospitalization)
  Sender: FDA-Public Use
  Company Number: BE-AMGEN-US280500

PATIENT
  Age: 49 Year
  Sex: Female
  Weight: 64 kg

DRUGS (1)
  1. ENBREL [Suspect]
     Active Substance: ETANERCEPT
     Indication: PRODUCT USED FOR UNKNOWN INDICATION
     Dosage: NOT PROVIDED
     Route: 058
     Dates: start: 20031222, end: 20070201

REACTIONS (1)
  - Pulmonary tuberculosis [Recovered/Resolved]

NARRATIVE: CASE EVENT DATE: 200701
